FAERS Safety Report 11167769 (Version 1)
Quarter: 2015Q2

REPORT INFORMATION
  Report Type: Report from Study
  Country: US (occurrence: None)
  Receive Date: 20150603
  Receipt Date: 20150603
  Transmission Date: 20150821
  Serious: Yes (Hospitalization)
  Sender: FDA-Public Use
  Company Number: 2014DEPUS00077

PATIENT
  Age: 53 Year
  Sex: Male
  Weight: 96.2 kg

DRUGS (2)
  1. DEPOCYT [Suspect]
     Active Substance: CYTARABINE
     Indication: ACUTE LYMPHOCYTIC LEUKAEMIA
     Dosage: ON DAY 1 (09APR14) AND 15 (23APR14) DURING CYCLE 1. DOSE PER PROTOCOL: 25 MG, INTRATHECAL
     Route: 037
     Dates: start: 20140409
  2. PEG/L-ASPARAGINASE [Suspect]
     Active Substance: PEGASPARGASE
     Indication: ACUTE LYMPHOCYTIC LEUKAEMIA
     Dosage: 2250 UNITS, 1X, INTRAVENOUS
     Route: 042
     Dates: start: 20140424, end: 20140424

REACTIONS (6)
  - Transaminases increased [None]
  - Blood alkaline phosphatase increased [None]
  - Blood lactate dehydrogenase increased [None]
  - Aspartate aminotransferase increased [None]
  - Hyperbilirubinaemia [None]
  - Alanine aminotransferase increased [None]

NARRATIVE: CASE EVENT DATE: 20140501
